FAERS Safety Report 8105767-7 (Version None)
Quarter: 2012Q1

REPORT INFORMATION
  Report Type: 
  Country: None (occurrence: None)
  Receive Date: 20120201
  Receipt Date: 20120126
  Transmission Date: 20120608
  Serious: Yes (Other)
  Sender: FDA-Public Use
  Company Number: US-PFIZER INC-2012022500

PATIENT
  Sex: Male
  Weight: 113 kg

DRUGS (6)
  1. CLONIDINE [Concomitant]
     Indication: HYPERTENSION
     Dosage: UNK
  2. NEURONTIN [Suspect]
     Indication: NERVE INJURY
     Dosage: 1200 MG, 3X/DAY
     Route: 048
     Dates: start: 20060101
  3. VISTARIL [Concomitant]
     Indication: ANXIETY
     Dosage: UNK
  4. TRAMADOL [Concomitant]
     Indication: PAIN IN EXTREMITY
     Dosage: UNK
  5. PAXIL [Concomitant]
     Indication: DEPRESSION
     Dosage: UNK
  6. CLONAZEPAM [Concomitant]
     Indication: ANXIETY
     Dosage: UNK

REACTIONS (1)
  - DIABETES MELLITUS [None]
